FAERS Safety Report 10585309 (Version 1)
Quarter: 2014Q4

REPORT INFORMATION
  Report Type: Spontaneous
  Country: AR (occurrence: AR)
  Receive Date: 20141114
  Receipt Date: 20141114
  Transmission Date: 20150529
  Serious: Yes (Other)
  Sender: FDA-Public Use
  Company Number: PHHY2014AR148706

PATIENT
  Age: 24 Year
  Sex: Male

DRUGS (1)
  1. TRILEPTAL [Suspect]
     Active Substance: OXCARBAZEPINE
     Indication: SEIZURE
     Dosage: 4 UNK, QD
     Route: 065

REACTIONS (1)
  - Cerebral calcification [Recovered/Resolved]

NARRATIVE: CASE EVENT DATE: 20020222
